FAERS Safety Report 8048974 (Version 3)
Quarter: 2012Q4

REPORT INFORMATION
  Report Type: Report from Study
  Country: US (occurrence: US)
  Receive Date: 20110722
  Receipt Date: 20121002
  Transmission Date: 20130627
  Serious: Yes (Hospitalization)
  Sender: FDA-Public Use
  Company Number: US-JNJFOC-20110706897

PATIENT
  Age: 18 Year
  Sex: Female
  Weight: 61.69 kg

DRUGS (10)
  1. REMICADE [Suspect]
     Indication: INFLAMMATORY BOWEL DISEASE
     Route: 042
     Dates: start: 20100218
  2. REMICADE [Suspect]
     Indication: INFLAMMATORY BOWEL DISEASE
     Route: 042
     Dates: start: 20081110, end: 20100422
  3. MIDODRINE [Concomitant]
  4. AMITIZA [Concomitant]
  5. SENOKOT [Concomitant]
  6. PRILOSEC [Concomitant]
  7. FLORINEF [Concomitant]
  8. TRILEPTAL [Concomitant]
  9. KLONOPIN [Concomitant]
  10. 5-ASA [Concomitant]
     Route: 048

REACTIONS (1)
  - Irritable bowel syndrome [Recovered/Resolved]
